FAERS Safety Report 8122002-4 (Version None)
Quarter: 2012Q1

REPORT INFORMATION
  Report Type: 
  Country: None (occurrence: None)
  Receive Date: 20120208
  Receipt Date: 20120127
  Transmission Date: 20120608
  Serious: Yes (Hospitalization)
  Sender: FDA-Public Use
  Company Number: RU-ELI_LILLY_AND_COMPANY-RU201108004662

PATIENT
  Sex: Male
  Weight: 70 kg

DRUGS (7)
  1. METOPROLOL [Concomitant]
     Dosage: UNK
     Dates: start: 20081110
  2. GEMCITABINE HYDROCHLORIDE [Suspect]
     Indication: NON-SMALL CELL LUNG CANCER STAGE IV
     Dosage: 2387 MG, EVERY 21 DAYS/CYCLE
     Route: 042
     Dates: start: 20110426
  3. GLICLAZIDE [Concomitant]
     Dosage: UNK
     Dates: start: 20090515
  4. CISPLATIN [Suspect]
     Indication: NON-SMALL CELL LUNG CANCER STAGE IV
     Dosage: 143 MG, EVERY 21 DAYS/CYCLE
     Route: 042
     Dates: start: 20110426
  5. NECITUMUMAB (11F8) (LY3012211) [Suspect]
     Indication: NON-SMALL CELL LUNG CANCER STAGE IV
     Dosage: 800 MG, OTHER
     Route: 042
     Dates: start: 20110426
  6. KETOPROFEN [Concomitant]
     Dosage: UNK
     Dates: start: 20110405
  7. TRAMADOL HCL [Concomitant]
     Dosage: UNK
     Dates: start: 20110808

REACTIONS (1)
  - RENAL FAILURE CHRONIC [None]
